FAERS Safety Report 7353254-6 (Version None)
Quarter: 2011Q1

REPORT INFORMATION
  Report Type: 
  Country: None (occurrence: None)
  Receive Date: 20110310
  Receipt Date: 20110310
  Transmission Date: 20110831
  Serious: Yes (Death)
  Sender: FDA-Public Use
  Company Number: None

PATIENT
  Age: 61 Year
  Sex: Female

DRUGS (7)
  1. REVLIMID [Suspect]
     Indication: MULTIPLE MYELOMA
     Dosage: 25MG DAILY ORALLY
     Route: 048
     Dates: start: 20090401, end: 20090801
  2. TRICITRATES [Concomitant]
  3. MEGESTEROL [Concomitant]
  4. NYSTATIN ORAL SUSPENSION [Concomitant]
  5. OMEPRAZOLE [Concomitant]
  6. FERROUS SULFATE TAB [Concomitant]
  7. GABAPENTIN [Concomitant]

REACTIONS (1)
  - NO THERAPEUTIC RESPONSE [None]
